FAERS Safety Report 8858567 (Version 1)
Quarter: 2012Q4

REPORT INFORMATION
  Report Type: 
  Country: NL (occurrence: NL)
  Receive Date: 20121024
  Receipt Date: 20121024
  Transmission Date: 20130627
  Serious: Yes (Other)
  Sender: FDA-Public Use
  Company Number: NL-ROCHE-1145002

PATIENT
  Sex: Female

DRUGS (2)
  1. TRASTUZUMAB [Suspect]
     Indication: BREAST CANCER
     Route: 042
     Dates: start: 201201
  2. TRASTUZUMAB [Suspect]
     Route: 042
     Dates: start: 201206

REACTIONS (2)
  - Cervical dysplasia [Not Recovered/Not Resolved]
  - Back pain [Not Recovered/Not Resolved]
